FAERS Safety Report 8379578-1 (Version None)
Quarter: 2012Q2

REPORT INFORMATION
  Report Type: 
  Country: None (occurrence: None)
  Receive Date: 20120523
  Receipt Date: 20120510
  Transmission Date: 20120825
  Serious: No
  Sender: FDA-Public Use
  Company Number: US-ASTRAZENECA-2011SE41723

PATIENT
  Age: 86 Year
  Sex: Female

DRUGS (5)
  1. PULMICORT FLEXHALER [Suspect]
     Route: 055
  2. ALBUTEROL [Concomitant]
  3. SYMBICORT [Suspect]
     Dosage: UNKNOWN FREQUENCY
     Route: 055
  4. PROVENTIL [Concomitant]
  5. ANTIBIOTIC [Suspect]
     Route: 065

REACTIONS (4)
  - PULMONARY FUNCTION TEST DECREASED [None]
  - DRUG EFFECT DECREASED [None]
  - DYSPNOEA [None]
  - HYPOACUSIS [None]
